FAERS Safety Report 6615424-1 (Version None)
Quarter: 2010Q1

REPORT INFORMATION
  Report Type: 
  Country: None (occurrence: None)
  Receive Date: 20100305
  Receipt Date: 20091207
  Transmission Date: 20100710
  Serious: No
  Sender: FDA-Public Use
  Company Number: A0833896A

PATIENT
  Age: 44 Year
  Sex: Female

DRUGS (3)
  1. ROPINIROLE [Suspect]
     Indication: RESTLESS LEGS SYNDROME
     Dosage: 1MG PER DAY
     Route: 048
     Dates: start: 20080101
  2. CARVEDILOL [Concomitant]
  3. COZAAR [Concomitant]

REACTIONS (2)
  - NAUSEA [None]
  - VOMITING [None]
